FAERS Safety Report 18664549 (Version 2)
Quarter: 2020Q4

REPORT INFORMATION
  Report Type: Spontaneous
  Country: US (occurrence: US)
  Receive Date: 20201225
  Receipt Date: 20201229
  Transmission Date: 20210114
  Serious: Yes (Other)
  Sender: FDA-Public Use
  Company Number: US-BAUSCH-BL-2020-038359

PATIENT
  Age: 77 Year
  Sex: Female
  Weight: 67.19 kg

DRUGS (4)
  1. LOSARTAN. [Concomitant]
     Active Substance: LOSARTAN
     Indication: PRODUCT USED FOR UNKNOWN INDICATION
     Route: 048
  2. DORZOLAMIDE HYDROCHLORIDE AND TIMOLOL MALEATE [Suspect]
     Active Substance: DORZOLAMIDE HYDROCHLORIDE\TIMOLOL MALEATE
     Indication: GLAUCOMA
     Dosage: 2 PERCENT/0.5 PERCENT, STARTED MORE THAN TEN YEARS AGO, ONE DROP IN EACH EYE
     Route: 047
  3. DORZOLAMIDE HYDROCHLORIDE AND TIMOLOL MALEATE [Suspect]
     Active Substance: DORZOLAMIDE HYDROCHLORIDE\TIMOLOL MALEATE
     Dosage: 2 PERCENT/0.5 PERCENT, NEW BOTTLE STARTED ABOUT ONE MONTH AGO, ONE DROP IN EACH EYE
     Route: 047
     Dates: start: 202011
  4. TRAVOPROST. [Concomitant]
     Active Substance: TRAVOPROST
     Indication: PRODUCT USED FOR UNKNOWN INDICATION
     Route: 047

REACTIONS (14)
  - Cataract [Unknown]
  - Visual impairment [Unknown]
  - Product quality issue [Unknown]
  - Superficial injury of eye [Unknown]
  - Eye irritation [Unknown]
  - Eye infection staphylococcal [Unknown]
  - Glaucoma [Unknown]
  - Foreign body sensation in eyes [Unknown]
  - Product label issue [Unknown]
  - Eye pain [Recovered/Resolved]
  - Product container issue [Unknown]
  - Product delivery mechanism issue [Unknown]
  - Eye operation [Unknown]
  - Eye injury [Unknown]

NARRATIVE: CASE EVENT DATE: 2015
